FAERS Safety Report 7768282-6 (Version None)
Quarter: 2011Q3

REPORT INFORMATION
  Report Type: 
  Country: None (occurrence: None)
  Receive Date: 20110922
  Receipt Date: 20101117
  Transmission Date: 20111222
  Serious: No
  Sender: FDA-Public Use
  Company Number: US-ASTRAZENECA-2010SE54941

PATIENT
  Sex: Male

DRUGS (9)
  1. METFORMIN [Concomitant]
     Indication: DIABETES MELLITUS
  2. SEROQUEL [Suspect]
     Indication: POST-TRAUMATIC STRESS DISORDER
     Route: 048
  3. SEROQUEL [Suspect]
     Indication: OBSESSIVE-COMPULSIVE DISORDER
     Route: 048
  4. LAMICTAL [Concomitant]
     Indication: CONVULSION
  5. SEROQUEL [Suspect]
     Indication: DEPRESSION
     Route: 048
  6. SEROQUEL [Suspect]
     Indication: PANIC ATTACK
     Route: 048
  7. CELEXA [Concomitant]
  8. SEROQUEL [Suspect]
     Indication: ATTENTION DEFICIT/HYPERACTIVITY DISORDER
     Route: 048
  9. WELLBUTRIN [Concomitant]

REACTIONS (1)
  - DRUG EFFECT DECREASED [None]
